FAERS Safety Report 6296621-4 (Version None)
Quarter: 2009Q3

REPORT INFORMATION
  Report Type: 
  Country: None (occurrence: None)
  Receive Date: 20090804
  Receipt Date: 20090730
  Transmission Date: 20100115
  Serious: Yes (Other)
  Sender: FDA-Public Use
  Company Number: JP-BRISTOL-MYERS SQUIBB COMPANY-14722300

PATIENT
  Age: 51 Year
  Sex: Female

DRUGS (5)
  1. TAXOL [Suspect]
     Indication: BREAST CANCER
     Route: 042
  2. ENDOXAN [Suspect]
     Indication: BREAST CANCER
  3. EPIRUBICIN HCL [Suspect]
     Indication: BREAST CANCER
  4. FLUOROURACIL [Concomitant]
     Indication: BREAST CANCER
  5. HORMONE THERAPY [Concomitant]

REACTIONS (1)
  - ACUTE PROMYELOCYTIC LEUKAEMIA [None]
